FAERS Safety Report 22279260 (Version 1)
Quarter: 2023Q2

REPORT INFORMATION
  Report Type: Report from Study
  Country: US (occurrence: US)
  Receive Date: 20230503
  Receipt Date: 20230503
  Transmission Date: 20230722
  Serious: Yes (Other)
  Sender: FDA-Public Use
  Company Number: US-INCYTE CORPORATION-2023IN004547

PATIENT

DRUGS (2)
  1. JAKAFI [Suspect]
     Active Substance: RUXOLITINIB
     Indication: Myelofibrosis
     Dosage: 5 MILLIGRAM, BID
     Route: 065
  2. JAKAFI [Suspect]
     Active Substance: RUXOLITINIB
     Dosage: 10 MILLIGRAM, BID (FOR 3 WEEKS)
     Route: 065

REACTIONS (6)
  - Thrombocytopenia [Unknown]
  - Myelofibrosis [Unknown]
  - Pruritus [Unknown]
  - Fatigue [Unknown]
  - Anaemia [Unknown]
  - Disease progression [Unknown]
